FAERS Safety Report 6297872-5 (Version None)
Quarter: 2009Q3

REPORT INFORMATION
  Report Type: 
  Country: None (occurrence: None)
  Receive Date: 20090804
  Receipt Date: 20090804
  Transmission Date: 20100115
  Serious: No
  Sender: FDA-Public Use
  Company Number: None

PATIENT
  Age: 45 Year
  Sex: Female
  Weight: 86.1834 kg

DRUGS (1)
  1. LEVAQUIN [Suspect]
     Indication: PNEUMONIA
     Dosage: 750 MG, ONCE/DAY, PO
     Route: 048
     Dates: start: 20090628, end: 20090716

REACTIONS (1)
  - TENDONITIS [None]
